FAERS Safety Report 7977659-5 (Version None)
Quarter: 2011Q4

REPORT INFORMATION
  Report Type: 
  Country: None (occurrence: None)
  Receive Date: 20111214
  Receipt Date: 20111123
  Transmission Date: 20120403
  Serious: No
  Sender: FDA-Public Use
  Company Number: US-AMGEN-USASP2011054684

PATIENT
  Age: 48 Year
  Sex: Female

DRUGS (5)
  1. ENBREL [Suspect]
     Indication: PSORIASIS
     Dosage: 50 MG, 2 TIMES/WK
     Route: 058
     Dates: start: 20111017, end: 20111104
  2. ENBREL [Suspect]
     Indication: PSORIATIC ARTHROPATHY
  3. MELOXICAM [Concomitant]
     Indication: MIGRAINE
     Dosage: UNK UNK, PRN
     Route: 048
  4. CLOBEX                             /00012002/ [Concomitant]
     Indication: PSORIASIS
     Dosage: UNK UNK, BID
     Route: 061
     Dates: start: 20110927
  5. HORMONES [Concomitant]
     Indication: MENOPAUSE
     Dosage: UNK UNK, DAILY
     Route: 061

REACTIONS (7)
  - FATIGUE [None]
  - MENTAL IMPAIRMENT [None]
  - ASTHENIA [None]
  - INFLUENZA LIKE ILLNESS [None]
  - PAIN [None]
  - ARTHRALGIA [None]
  - DEPRESSION [None]
